FAERS Safety Report 9344799 (Version 1)
Quarter: 2013Q2

REPORT INFORMATION
  Report Type: Spontaneous
  Country: FR (occurrence: FR)
  Receive Date: 20130612
  Receipt Date: 20130612
  Transmission Date: 20140414
  Serious: Yes (Death, Hospitalization, Other)
  Sender: FDA-Public Use
  Company Number: FR-ASTRAZENECA-2013SE40931

PATIENT
  Age: 28581 Day
  Sex: Male

DRUGS (6)
  1. INEXIUM [Suspect]
     Route: 048
     Dates: start: 20130211, end: 20130306
  2. CEFTRIAXONE MYLAN [Suspect]
     Route: 048
     Dates: start: 20130301, end: 20130310
  3. CIPROFLOXACINE [Suspect]
     Route: 042
     Dates: start: 20130301, end: 20130305
  4. CIPROFLOXACINE [Suspect]
     Route: 048
     Dates: start: 20130305, end: 20130307
  5. HYDREA [Suspect]
     Indication: ESSENTIAL THROMBOCYTHAEMIA
     Route: 048
     Dates: end: 20130209
  6. HYDREA [Suspect]
     Indication: ESSENTIAL THROMBOCYTHAEMIA
     Route: 048
     Dates: start: 20130209, end: 20130309

REACTIONS (8)
  - Pancytopenia [Recovered/Resolved]
  - Acute respiratory failure [Unknown]
  - Infection [Unknown]
  - Chronic obstructive pulmonary disease [None]
  - Bronchopneumopathy [None]
  - Hypoxia [None]
  - Cardiac arrest [None]
  - Multi-organ failure [None]
